FAERS Safety Report 4897455-5 (Version None)
Quarter: 2006Q1

REPORT INFORMATION
  Report Type: 
  Country: None (occurrence: None)
  Receive Date: 20060130
  Receipt Date: 20060130
  Transmission Date: 20060701
  Serious: Yes (Hospitalization)
  Sender: FDA-Public Use
  Company Number: None

PATIENT
  Age: 66 Year
  Sex: Female
  Weight: 70.5 kg

DRUGS (13)
  1. ALIMTA [Suspect]
     Indication: LEIOMYOSARCOMA METASTATIC
     Dosage: 300MG/M2/Q 2 WK/ IV PORT
     Route: 042
     Dates: start: 20060112
  2. TAXOTERE [Suspect]
     Dosage: 25 MG/M2/Q 2 WE/IV PORT
     Route: 042
     Dates: start: 20060112
  3. IBUPROFEN [Concomitant]
  4. UNASOM [Concomitant]
  5. MORPHINE [Concomitant]
  6. DRIXORAL [Concomitant]
  7. XANAX [Concomitant]
  8. ATACAND HCT [Concomitant]
  9. ZOFRAN [Concomitant]
  10. TIGAN [Concomitant]
  11. DARBEPOEITIN [Concomitant]
  12. NEOSPORIN [Concomitant]
  13. CLIMARA [Concomitant]

REACTIONS (2)
  - LETHARGY [None]
  - MALAISE [None]
